FAERS Safety Report 4385409-7 (Version None)
Quarter: 2004Q2

REPORT INFORMATION
  Report Type: 
  Country: None (occurrence: None)
  Receive Date: 20040622
  Receipt Date: 20040610
  Transmission Date: 20050107
  Serious: Yes (Hospitalization)
  Sender: FDA-Public Use
  Company Number: 04P-163-0263680-00

PATIENT
  Age: 28 Year
  Sex: Male
  Weight: 103.8737 kg

DRUGS (5)
  1. DEPAKOTE ER [Suspect]
     Indication: SCHIZOPHRENIA
     Dosage: PER ORAL
     Route: 048
     Dates: start: 20040414, end: 20040610
  2. RISPERIDONE [Concomitant]
  3. OLANZAPINE [Concomitant]
  4. BENZATROPINE MESILATE [Concomitant]
  5. ALBUTEROL SULFATE [Concomitant]

REACTIONS (2)
  - DIABETES MELLITUS NON-INSULIN-DEPENDENT [None]
  - SOMNOLENCE [None]
